FAERS Safety Report 6655619-4 (Version None)
Quarter: 2010Q1

REPORT INFORMATION
  Report Type: 
  Country: None (occurrence: None)
  Receive Date: 20100326
  Receipt Date: 20100326
  Transmission Date: 20100710
  Serious: No
  Sender: FDA-Public Use
  Company Number: None

PATIENT
  Age: 27 Year
  Sex: Male

DRUGS (1)
  1. NALTREXONE HYDROCHLORIDE [Suspect]
     Dosage: 380 MG OTHER
     Route: 050
     Dates: start: 20091006, end: 20091211

REACTIONS (1)
  - INJECTION SITE PAIN [None]
